FAERS Safety Report 5402284-X (Version None)
Quarter: 2007Q3

REPORT INFORMATION
  Report Type: 
  Country: None (occurrence: None)
  Receive Date: 20070801
  Receipt Date: 20070730
  Transmission Date: 20080115
  Serious: Yes (Life-Threatening, Hospitalization)
  Sender: FDA-Public Use
  Company Number: BE-BAYER-200712388GDS

PATIENT
  Age: 71 Year
  Sex: Male
  Weight: 69 kg

DRUGS (12)
  1. SORAFENIB [Suspect]
     Indication: NON-SMALL CELL LUNG CANCER
     Dosage: UNIT DOSE: 400 MG
     Route: 048
     Dates: start: 20070228, end: 20070317
  2. SORAFENIB [Suspect]
     Dosage: UNIT DOSE: 400 MG
     Route: 048
     Dates: start: 20070321, end: 20070407
  3. SORAFENIB [Suspect]
     Dosage: UNIT DOSE: 400 MG
     Route: 048
     Dates: start: 20070411, end: 20070428
  4. CARBOPLATIN [Suspect]
     Indication: NON-SMALL CELL LUNG CANCER
     Route: 042
     Dates: start: 20070227, end: 20070227
  5. CARBOPLATIN [Suspect]
     Route: 042
     Dates: start: 20070410, end: 20070410
  6. CARBOPLATIN [Suspect]
     Route: 042
     Dates: start: 20070320, end: 20070320
  7. PACLITAXEL [Suspect]
     Indication: NON-SMALL CELL LUNG CANCER
     Route: 042
     Dates: start: 20070320, end: 20070320
  8. PACLITAXEL [Suspect]
     Route: 042
     Dates: start: 20070227, end: 20070227
  9. PACLITAXEL [Suspect]
     Route: 042
     Dates: start: 20070410, end: 20070410
  10. ANTISEPTIC MOUTH WASH [Concomitant]
     Indication: PROPHYLAXIS
     Route: 048
     Dates: start: 20070227
  11. AMOXICILLIN [Concomitant]
     Indication: PHARYNGITIS
     Route: 048
     Dates: start: 20070416, end: 20070418
  12. DIFLUCAN [Concomitant]
     Indication: FUNGAL INFECTION
     Route: 048
     Dates: start: 20070416

REACTIONS (3)
  - CHOLANGITIS [None]
  - NEUTROPENIA [None]
  - PSEUDOMONAL SEPSIS [None]
